FAERS Safety Report 5796407-0 (Version None)
Quarter: 2008Q2

REPORT INFORMATION
  Report Type: 
  Country: None (occurrence: None)
  Receive Date: 20080630
  Receipt Date: 20080630
  Transmission Date: 20081010
  Serious: Yes (Life-Threatening)
  Sender: FDA-Public Use
  Company Number: None

PATIENT
  Age: 56 Year
  Sex: Female
  Weight: 78.4723 kg

DRUGS (2)
  1. MUCINEX DM [Suspect]
     Indication: MULTIPLE ALLERGIES
     Dosage: 1 12 HRS. UNK
     Route: 065
     Dates: start: 20080626, end: 20080626
  2. ALEVE [Suspect]
     Indication: PAIN
     Dosage: 1 3 DAYS SINCE LAST UNK
     Route: 065
     Dates: start: 20080626, end: 20080626

REACTIONS (9)
  - ALTERED STATE OF CONSCIOUSNESS [None]
  - ASTHENIA [None]
  - BLOOD PRESSURE INCREASED [None]
  - DISORIENTATION [None]
  - DIZZINESS [None]
  - HEART RATE DECREASED [None]
  - NAUSEA [None]
  - REFUSAL OF TREATMENT BY PATIENT [None]
  - VOMITING [None]
